FAERS Safety Report 9141076 (Version 2)
Quarter: 2013Q1

REPORT INFORMATION
  Report Type: Report from Study
  Country: FR (occurrence: FR)
  Receive Date: 20130305
  Receipt Date: 20130312
  Transmission Date: 20140127
  Serious: Yes (Hospitalization)
  Sender: FDA-Public Use
  Company Number: FR-PFIZER INC-2013001935

PATIENT
  Age: 70 Year
  Sex: Male

DRUGS (9)
  1. SUNITINIB MALATE [Suspect]
     Indication: HEPATOCELLULAR CARCINOMA
     Dosage: 25 MG, 1X/DAY, CYCLE 1
     Route: 048
     Dates: start: 20121023
  2. SUNITINIB MALATE [Suspect]
     Dosage: 25 MG, 1X/DAY (CYCLE 2)
     Route: 048
     Dates: start: 20121204, end: 20121221
  3. DOXORUBICIN HCL [Suspect]
     Indication: HEPATOCELLULAR CARCINOMA
     Dosage: 150 MG, CYCLIC
     Route: 013
     Dates: start: 20121031, end: 20121031
  4. CARDENSIEL [Concomitant]
  5. EXFORGE [Concomitant]
  6. INSPRA [Concomitant]
  7. LASILIX [Concomitant]
  8. LYRICA [Concomitant]
  9. LEVEMIR [Concomitant]

REACTIONS (3)
  - Hepatic encephalopathy [Recovered/Resolved]
  - Diarrhoea [Recovered/Resolved]
  - Pyelonephritis acute [Recovered/Resolved]
